FAERS Safety Report 9170187 (Version 3)
Quarter: 2013Q2

REPORT INFORMATION
  Report Type: Spontaneous
  Country: IN (occurrence: IN)
  Receive Date: 20130319
  Receipt Date: 20130411
  Transmission Date: 20140414
  Serious: Yes (Hospitalization)
  Sender: FDA-Public Use
  Company Number: PHHY2013IN025793

PATIENT
  Age: 36 Year
  Sex: Male

DRUGS (8)
  1. SIMULECT [Suspect]
     Indication: PROPHYLAXIS AGAINST TRANSPLANT REJECTION
     Dosage: 1 DF, UNK
     Route: 042
     Dates: start: 20130205
  2. TACROLIMUS [Concomitant]
     Dosage: UNK UKN, UNK
  3. MYCOPHENOLATE MOFETIL [Concomitant]
     Dosage: UNK UKN, UNK
  4. PREDNISOLON [Concomitant]
     Dosage: UNK UKN, UNK
  5. CELLCEPT [Concomitant]
     Dosage: 1 DF,TDS
  6. WYSOLONE [Concomitant]
     Dosage: 20 MG, UNK
  7. SEPMAX [Concomitant]
     Dosage: 1 DF, ALTERNATE DAY
  8. ARKAMIN [Concomitant]
     Dosage: 0.1 MG, TID

REACTIONS (14)
  - Renal haemorrhage [Recovered/Resolved]
  - Renal haematoma [Recovered/Resolved]
  - Haemoglobin decreased [Unknown]
  - Hyperglycaemia [Unknown]
  - Sepsis [Unknown]
  - Lower respiratory tract infection [Unknown]
  - Klebsiella infection [Unknown]
  - Kidney transplant rejection [Recovered/Resolved]
  - Capillaritis [Unknown]
  - Glomerulosclerosis [Unknown]
  - Local swelling [Unknown]
  - Urine output increased [Unknown]
  - Oedema due to renal disease [Unknown]
  - Complications of transplanted kidney [Unknown]
